FAERS Safety Report 5011549-5 (Version None)
Quarter: 2006Q2

REPORT INFORMATION
  Report Type: 
  Country: None (occurrence: None)
  Receive Date: 20060524
  Receipt Date: 20060511
  Transmission Date: 20061013
  Serious: Yes (Hospitalization)
  Sender: FDA-Public Use
  Company Number: RENA-11746

PATIENT
  Age: 37 Year
  Sex: Male

DRUGS (1)
  1. PHOSBLOCK 250 MG TABLETS [Suspect]
     Indication: HYPERPHOSPHATAEMIA
     Dosage: 2.25 G DAILY PO
     Route: 048

REACTIONS (2)
  - DIVERTICULUM INTESTINAL HAEMORRHAGIC [None]
  - MELAENA [None]
